FAERS Safety Report 9282776 (Version 2)
Quarter: 2013Q2

REPORT INFORMATION
  Report Type: Spontaneous
  Country: US (occurrence: None)
  Receive Date: 20101130
  Receipt Date: 20130419
  Transmission Date: 20140414
  Serious: Yes (Life-Threatening)
  Sender: FDA-Public Use
  Company Number: 54973 RSAE110210EF001

PATIENT
  Age: 2 Month
  Sex: Female
  Weight: 4.08 kg

DRUGS (1)
  1. HYLAND^S TEETHING TABLETS [Suspect]
     Indication: TEETHING
     Dosage: 2  TABS  3-4  HRS  X  1  TIME

REACTIONS (5)
  - Cough [None]
  - Choking [None]
  - Skin discolouration [None]
  - Rhinorrhoea [None]
  - Increased upper airway secretion [None]
